FAERS Safety Report 15203771 (Version 3)
Quarter: 2018Q4

REPORT INFORMATION
  Report Type: Spontaneous
  Country: JP (occurrence: JP)
  Receive Date: 20180726
  Receipt Date: 20181008
  Transmission Date: 20190204
  Serious: Yes (Death)
  Sender: FDA-Public Use
  Company Number: JP-EISAI MEDICAL RESEARCH-EC-2018-043080

PATIENT
  Age: 58 Year
  Sex: Female
  Weight: 48 kg

DRUGS (5)
  1. RINDERON V [Suspect]
     Active Substance: BETAMETHASONE VALERATE
     Route: 048
     Dates: start: 2018, end: 2018
  2. E KEPPRA [Concomitant]
     Active Substance: LEVETIRACETAM
     Indication: SEIZURE
     Route: 048
     Dates: start: 20180608, end: 20180725
  3. HALAVEN [Suspect]
     Active Substance: ERIBULIN MESYLATE
     Indication: BREAST CANCER RECURRENT
     Route: 041
     Dates: start: 20180702, end: 20180709
  4. RINDERON V [Suspect]
     Active Substance: BETAMETHASONE VALERATE
     Route: 048
     Dates: start: 2018, end: 20180725
  5. RINDERON V [Suspect]
     Active Substance: BETAMETHASONE VALERATE
     Indication: BRAIN OEDEMA
     Route: 048
     Dates: start: 20180608, end: 2018

REACTIONS (1)
  - Pneumocystis jirovecii pneumonia [Fatal]

NARRATIVE: CASE EVENT DATE: 20180716
